FAERS Safety Report 6169652-2 (Version None)
Quarter: 2009Q2

REPORT INFORMATION
  Report Type: 
  Country: None (occurrence: None)
  Receive Date: 20090424
  Receipt Date: 20090204
  Transmission Date: 20091009
  Serious: No
  Sender: FDA-Public Use
  Company Number: ALL1-2009-00296

PATIENT
  Age: 45 Year
  Sex: Female
  Weight: 55.8 kg

DRUGS (3)
  1. VYVANSE [Suspect]
     Indication: ATTENTION DEFICIT/HYPERACTIVITY DISORDER
     Dosage: 40 MG, 1X/DAY, QD, ORAL
     Route: 048
     Dates: start: 20080701
  2. CLONAZEPAM [Concomitant]
  3. PROZAC [Concomitant]

REACTIONS (3)
  - FEELING HOT [None]
  - PARAESTHESIA [None]
  - PERIPHERAL COLDNESS [None]
